FAERS Safety Report 8222397-7 (Version None)
Quarter: 2012Q1

REPORT INFORMATION
  Report Type: 
  Country: None (occurrence: None)
  Receive Date: 20120320
  Receipt Date: 20120315
  Transmission Date: 20120608
  Serious: Yes (Death, Life-Threatening)
  Sender: FDA-Public Use
  Company Number: DE-PFIZER INC-2012059070

PATIENT
  Age: 70 Year
  Sex: Male

DRUGS (12)
  1. MELPERONE [Suspect]
     Dosage: 50-100MG/DAY
     Dates: end: 20111117
  2. RISPERDAL [Suspect]
     Dosage: 1.5 MG, UNK
     Route: 048
     Dates: end: 20111117
  3. MIRTAZAPINE [Suspect]
     Dosage: 45 MG, UNK
     Route: 048
     Dates: end: 20111117
  4. MIRTAZAPINE [Suspect]
     Dosage: 30 MG, UNK
     Route: 048
     Dates: start: 20111118, end: 20111121
  5. METFORMIN [Concomitant]
     Dosage: 1000 MG, UNK
     Dates: end: 20111121
  6. AMLODIPINE BESYLATE [Suspect]
     Dosage: 5 MG, UNK
     Dates: end: 20111121
  7. ACETYLSALICYLIC ACID SRT [Suspect]
     Dosage: 40 MG, UNK
     Route: 048
     Dates: start: 20111120, end: 20111120
  8. TILIDINE [Suspect]
     Dosage: 208 MG, UNK
     Dates: end: 20111121
  9. PANTOPRAZOLE [Concomitant]
     Dosage: 20 MG, UNK
     Route: 048
     Dates: start: 20111118, end: 20111121
  10. RISPERDAL [Suspect]
     Dosage: 2 MG, UNK
     Route: 048
     Dates: start: 20111118, end: 20111121
  11. IBUPROFEN [Concomitant]
     Dosage: 1200 MG, UNK
     Route: 048
     Dates: end: 20111121
  12. JONOSTERIL [Concomitant]
     Dosage: 1000 ML, UNK
     Route: 042
     Dates: start: 20111121, end: 20111121

REACTIONS (2)
  - HALLUCINATION, VISUAL [None]
  - PNEUMONIA [None]
